FAERS Safety Report 16224333 (Version 1)
Quarter: 2019Q2

REPORT INFORMATION
  Report Type: Spontaneous
  Country: BR (occurrence: BR)
  Receive Date: 20190422
  Receipt Date: 20190422
  Transmission Date: 20190711
  Serious: Yes (Other)
  Sender: FDA-Public Use
  Company Number: BR-PFIZER INC-2019166140

PATIENT
  Age: 66 Year
  Sex: Male

DRUGS (2)
  1. XALACOM [Suspect]
     Active Substance: LATANOPROST\TIMOLOL MALEATE
     Indication: GLAUCOMA
     Dosage: UNK
     Route: 047
     Dates: start: 2009
  2. XALATAN [Suspect]
     Active Substance: LATANOPROST
     Indication: GLAUCOMA
     Route: 047

REACTIONS (2)
  - Deafness [Not Recovered/Not Resolved]
  - Accident [Not Recovered/Not Resolved]

NARRATIVE: CASE EVENT DATE: 2009
